FAERS Safety Report 8365449-3 (Version None)
Quarter: 2012Q2

REPORT INFORMATION
  Report Type: 
  Country: None (occurrence: None)
  Receive Date: 20120516
  Receipt Date: 20120511
  Transmission Date: 20120825
  Serious: Yes (Other)
  Sender: FDA-Public Use
  Company Number: VE-PFIZER INC-2012108730

PATIENT
  Age: 51 Year
  Sex: Female

DRUGS (2)
  1. ADALAT [Concomitant]
     Indication: HYPERTENSION
     Dosage: UNK,  ONCE DAILY
     Route: 048
     Dates: start: 20060101
  2. LIPITOR [Suspect]
     Indication: HYPERCHOLESTEROLAEMIA
     Dosage: 40 MG, ONCE DAILY
     Route: 048
     Dates: start: 20080101, end: 20120401

REACTIONS (1)
  - HAEMATEMESIS [None]
